FAERS Safety Report 8609620-1 (Version None)
Quarter: 2012Q3

REPORT INFORMATION
  Report Type: 
  Country: None (occurrence: None)
  Receive Date: 20120423
  Receipt Date: 20090226
  Transmission Date: 20120928
  Serious: Yes (Hospitalization)
  Sender: FDA-Public Use
  Company Number: PHEH2008US11058

PATIENT
  Age: 60 Year
  Sex: Female

DRUGS (6)
  1. AMARYL [Concomitant]
  2. MALFATE [Concomitant]
  3. VYTORIN (EZETIMIBE, SIMVSTATIN) [Concomitant]
  4. FEMARA [Suspect]
     Indication: BREAST CANCER
     Dosage: 2.5 MG, QD, ORAL
     Route: 048
     Dates: start: 20070703, end: 20090101
  5. ENALAPRIL MALEATE [Concomitant]
  6. TRIAMTERENE (TRIAMTERENE) [Concomitant]

REACTIONS (1)
  - TRANSIENT ISCHAEMIC ATTACK [None]
